FAERS Safety Report 10054477 (Version 3)
Quarter: 2014Q2

REPORT INFORMATION
  Report Type: Spontaneous
  Country: CA (occurrence: CA)
  Receive Date: 20140402
  Receipt Date: 20140416
  Transmission Date: 20141212
  Serious: Yes (Other)
  Sender: FDA-Public Use
  Company Number: PHHY2014CA036726

PATIENT
  Age: 72 Year
  Sex: Female

DRUGS (4)
  1. ACLASTA [Suspect]
     Indication: OSTEOPOROSIS
     Dosage: 5 MG/100 ML
     Route: 042
     Dates: start: 20120412
  2. CALCIUM [Suspect]
     Dosage: UNK UKN, UNK
     Dates: end: 201301
  3. EFFEXOR [Concomitant]
     Dosage: 75 MG, UNK
  4. CALCIUM [Concomitant]
     Dosage: 500 UKN, BID

REACTIONS (20)
  - Loss of consciousness [Recovered/Resolved]
  - Arterial occlusive disease [Unknown]
  - Head injury [Unknown]
  - Eye contusion [Recovered/Resolved]
  - Eye pain [Unknown]
  - Skin injury [Unknown]
  - Skin haemorrhage [Unknown]
  - Loose tooth [Unknown]
  - Mastication disorder [Unknown]
  - Feeling abnormal [Unknown]
  - Local swelling [Unknown]
  - Face oedema [Unknown]
  - Skin discolouration [Unknown]
  - Dyspepsia [Unknown]
  - Pain in jaw [Recovered/Resolved]
  - Malaise [Unknown]
  - Headache [Unknown]
  - Abdominal discomfort [Unknown]
  - Vomiting [Unknown]
  - Pruritus [Unknown]
